FAERS Safety Report 7162141-8 (Version None)
Quarter: 2010Q4

REPORT INFORMATION
  Report Type: 
  Country: None (occurrence: None)
  Receive Date: 20101201
  Receipt Date: 20101117
  Transmission Date: 20110411
  Serious: Yes (Hospitalization)
  Sender: FDA-Public Use
  Company Number: 019859

PATIENT
  Sex: Female

DRUGS (19)
  1. CIMZIA [Suspect]
     Indication: RHEUMATOID ARTHRITIS
     Dosage: (SUBCUTANEOUS), (200 MG 1X/2 WEEKS SUBCUTANEOUS)
     Route: 058
     Dates: start: 20090610, end: 20090916
  2. CIMZIA [Suspect]
     Indication: RHEUMATOID ARTHRITIS
     Dosage: (SUBCUTANEOUS), (200 MG 1X/2 WEEKS SUBCUTANEOUS)
     Route: 058
     Dates: start: 20090930, end: 20100915
  3. REBAMIPIDE [Concomitant]
  4. SALAZOSULFAPYRIDINE [Concomitant]
  5. PREDNISOLONE [Concomitant]
  6. DICLOFENAC SODIUM [Concomitant]
  7. LANSOPRAZOLE [Concomitant]
  8. CANDESARTAN CILEXETIL [Concomitant]
  9. TAUROURSODESOXYCHOLIC ACID [Concomitant]
  10. SENNA LEAF [Concomitant]
  11. MAGNESIUM OXIDE [Concomitant]
  12. SODIUM PICOSULFATE [Concomitant]
  13. ALENDRONATE SODIUM [Concomitant]
  14. AMITRIPTYLINE HCL [Concomitant]
  15. MEXILETINE HYDROCHLORIDE [Concomitant]
  16. SODIUM GUALENATE [Concomitant]
  17. HYALURONATE SODIUM [Concomitant]
  18. CYANOCOBALAMIN [Concomitant]
  19. PIRENOXINE [Concomitant]

REACTIONS (6)
  - DECUBITUS ULCER [None]
  - DISCOMFORT [None]
  - IMMUNE SYSTEM DISORDER [None]
  - PARAESTHESIA [None]
  - POOR PERSONAL HYGIENE [None]
  - WOUND INFECTION [None]
